FAERS Safety Report 14165987 (Version 1)
Quarter: 2017Q4

REPORT INFORMATION
  Report Type: Report from Study
  Country: KR (occurrence: KR)
  Receive Date: 20171107
  Receipt Date: 20171107
  Transmission Date: 20180321
  Serious: Yes (Other)
  Sender: FDA-Public Use
  Company Number: KR-ASTELLAS-2017US045123

PATIENT

DRUGS (4)
  1. IRINOTECAN [Suspect]
     Active Substance: IRINOTECAN
     Indication: NON-SMALL CELL LUNG CANCER STAGE III
     Dosage: 60 MG/M2, OTHER (DAYS 1 AND 8)
     Route: 065
  2. ERLOTINIB [Suspect]
     Active Substance: ERLOTINIB
     Indication: NON-SMALL CELL LUNG CANCER STAGE III
     Route: 065
  3. IRINOTECAN [Suspect]
     Active Substance: IRINOTECAN
     Dosage: 65 MG/M2, OTHER (DAYS 1 AND 8)
     Route: 065
  4. CISPLATIN. [Suspect]
     Active Substance: CISPLATIN
     Indication: NON-SMALL CELL LUNG CANCER STAGE III
     Dosage: 30 MG/M2, OTHER (DAYS 1 AND 8)
     Route: 065

REACTIONS (6)
  - Neutropenia [Unknown]
  - Radiation oesophagitis [Unknown]
  - Decreased appetite [Unknown]
  - Fatigue [Unknown]
  - Rash [Unknown]
  - Asthenia [Unknown]
